FAERS Safety Report 4390838-1 (Version None)
Quarter: 2004Q3

REPORT INFORMATION
  Report Type: 
  Country: None (occurrence: None)
  Receive Date: 20040706
  Receipt Date: 20040706
  Transmission Date: 20050211
  Serious: Yes (Hospitalization)
  Sender: FDA-Public Use
  Company Number: None

PATIENT
  Sex: Female
  Weight: 90.7194 kg

DRUGS (1)
  1. RISPERDAL CONSTA [Suspect]
     Indication: INTERMITTENT EXPLOSIVE DISORDER
     Dosage: 25 MG ONE TIME INTRAMUSCULAR
     Route: 030
     Dates: start: 20040520, end: 20040520

REACTIONS (2)
  - NEUROLEPTIC MALIGNANT SYNDROME [None]
  - SEPSIS [None]
